FAERS Safety Report 20595604 (Version 1)
Quarter: 2022Q1

REPORT INFORMATION
  Report Type: Spontaneous
  Country: JP (occurrence: JP)
  Receive Date: 20220315
  Receipt Date: 20220315
  Transmission Date: 20220424
  Serious: Yes (Other)
  Sender: FDA-Public Use
  Company Number: JP-ASTELLAS-2022JP003969

PATIENT
  Age: 70 Year
  Sex: Female

DRUGS (2)
  1. PROGRAF [Suspect]
     Active Substance: TACROLIMUS
     Indication: Rheumatoid arthritis
     Dosage: UNK UNK, UNKNOWN FREQ.
     Route: 065
  2. METHOTREXATE [Suspect]
     Active Substance: METHOTREXATE
     Indication: Rheumatoid arthritis
     Dosage: UNK UNK, UNKNOWN FREQ.
     Route: 048

REACTIONS (5)
  - Bone sequestrum [Recovered/Resolved]
  - Epstein Barr virus positive mucocutaneous ulcer [Recovering/Resolving]
  - Periodontitis [Recovering/Resolving]
  - Impaired healing [Recovering/Resolving]
  - Osteitis [Recovering/Resolving]

NARRATIVE: CASE EVENT DATE: 20200101
